FAERS Safety Report 16076614 (Version 2)
Quarter: 2019Q3

REPORT INFORMATION
  Report Type: Spontaneous
  Country: US (occurrence: US)
  Receive Date: 20190315
  Receipt Date: 20190703
  Transmission Date: 20191004
  Serious: No
  Sender: FDA-Public Use
  Company Number: US-TEVA-2019-US-1016496

PATIENT
  Sex: Female
  Weight: 60.84 kg

DRUGS (3)
  1. LETROZOLE. [Suspect]
     Active Substance: LETROZOLE
     Indication: BREAST CANCER STAGE IV
     Dosage: FORM STRENGTH: 125, UNIT NOT REPORTED
     Route: 065
  2. IBRANCE [Suspect]
     Active Substance: PALBOCICLIB
     Indication: BREAST CANCER STAGE IV
     Dosage: 125 MILLIGRAM DAILY; FOR 21 DAYS AND 7 DAYS OFF
     Route: 048
  3. SYNTHROID [Suspect]
     Active Substance: LEVOTHYROXINE SODIUM
     Indication: THYROID FUNCTION TEST ABNORMAL
     Dosage: DOSE 88, TABLET ONCE DAILY BY MOUTH IN THE MORNING
     Route: 048

REACTIONS (2)
  - Blister [Recovered/Resolved]
  - Rash erythematous [Unknown]
